FAERS Safety Report 5689203-6 (Version None)
Quarter: 2008Q1

REPORT INFORMATION
  Report Type: 
  Country: None (occurrence: None)
  Receive Date: 20080331
  Receipt Date: 20080326
  Transmission Date: 20080703
  Serious: Yes (Other)
  Sender: FDA-Public Use
  Company Number: US-BRISTOL-MYERS SQUIBB COMPANY-12896619

PATIENT
  Age: 74 Year
  Sex: Male

DRUGS (3)
  1. CETUXIMAB [Suspect]
     Indication: NON-SMALL CELL LUNG CANCER
     Dosage: THERAPY DATES: 03MAR05-05MAY05(467MG)(COURSE 1, DOSE 1-COURSE 4, DOSE 1)
     Route: 042
     Dates: start: 20050311, end: 20050311
  2. CARBOPLATIN [Suspect]
     Indication: NON-SMALL CELL LUNG CANCER
     Dosage: 1ST CARBOPLATIN INFUSION ADMINISTERED ON 24-FEB-2005.
     Route: 042
     Dates: start: 20050224, end: 20050224
  3. PACLITAXEL [Suspect]
     Indication: NON-SMALL CELL LUNG CANCER
     Dosage: 1ST PACLITAXEL INFUSION ADMINISTERED ON 24-FEB-2005.
     Route: 042
     Dates: start: 20050224, end: 20050224

REACTIONS (1)
  - CHILLS [None]
